FAERS Safety Report 25907667 (Version 1)
Quarter: 2025Q4

REPORT INFORMATION
  Report Type: Spontaneous
  Country: US (occurrence: US)
  Receive Date: 20251010
  Receipt Date: 20251010
  Transmission Date: 20260119
  Serious: Yes (Other)
  Sender: TEVA
  Company Number: US-TEVA-VS-3378797

PATIENT
  Age: 63 Year
  Sex: Female

DRUGS (1)
  1. AJOVY [Suspect]
     Active Substance: FREMANEZUMAB-VFRM
     Indication: Migraine without aura
     Route: 058

REACTIONS (2)
  - Tremor [Unknown]
  - Product use issue [Unknown]
